FAERS Safety Report 15520052 (Version 1)
Quarter: 2018Q4

REPORT INFORMATION
  Report Type: Report from Study
  Country: US (occurrence: US)
  Receive Date: 20181017
  Receipt Date: 20181017
  Transmission Date: 20190205
  Serious: No
  Sender: FDA-Public Use
  Company Number: US-AMGEN-USASL2018103130

PATIENT
  Age: 55 Year
  Sex: Male

DRUGS (1)
  1. REPATHA [Suspect]
     Active Substance: EVOLOCUMAB
     Indication: HYPERCHOLESTEROLAEMIA
     Dosage: 140 MG, Q2WK
     Route: 065
     Dates: start: 2016

REACTIONS (6)
  - Asthenia [Unknown]
  - Muscle strain [Recovering/Resolving]
  - Muscle spasms [Unknown]
  - Mobility decreased [Unknown]
  - Gait disturbance [Unknown]
  - Skin discolouration [Unknown]
